FAERS Safety Report 7114386-0 (Version None)
Quarter: 2010Q4

REPORT INFORMATION
  Report Type: 
  Country: None (occurrence: None)
  Receive Date: 20101119
  Receipt Date: 20101111
  Transmission Date: 20110411
  Serious: Yes (Other)
  Sender: FDA-Public Use
  Company Number: JP-PFIZER INC-2010141706

PATIENT
  Age: 75 Year
  Sex: Male

DRUGS (9)
  1. LYRICA [Suspect]
     Indication: POST HERPETIC NEURALGIA
     Dosage: 75 MG, 2X/DAY
     Route: 048
     Dates: start: 20100716, end: 20101018
  2. LYRICA [Suspect]
     Dosage: UNK
     Route: 048
     Dates: start: 20100716
  3. 8-HOUR BAYER [Concomitant]
     Dosage: UNK
     Dates: start: 20100729
  4. 8-HOUR BAYER [Concomitant]
     Dosage: UNK
     Dates: start: 20100729
  5. MUCOSTA [Concomitant]
     Dosage: UNK
     Dates: start: 20100629
  6. CYANOCOBALAMIN [Concomitant]
     Dosage: UNK
     Dates: start: 20100629
  7. FAMVIR [Concomitant]
     Dosage: UNK
     Dates: start: 20100629
  8. AMITRIPTYLINE HCL [Concomitant]
     Dosage: UNK
     Dates: start: 20100729
  9. LOXONIN [Concomitant]
     Dosage: UNK
     Dates: start: 20100629

REACTIONS (1)
  - HEPATIC FUNCTION ABNORMAL [None]
